FAERS Safety Report 22213381 (Version 1)
Quarter: 2023Q2

REPORT INFORMATION
  Report Type: Spontaneous
  Country: US (occurrence: US)
  Receive Date: 20230414
  Receipt Date: 20230414
  Transmission Date: 20230721
  Serious: No
  Sender: FDA-Public Use
  Company Number: US-DUCHESNAY-2023US000008

PATIENT

DRUGS (1)
  1. OSPHENA [Suspect]
     Active Substance: OSPEMIFENE
     Indication: Product used for unknown indication
     Dosage: 1 DOSAGE FORM, QD WITH FOOD
     Route: 065
     Dates: start: 20220715, end: 20220803

REACTIONS (3)
  - Night sweats [Not Recovered/Not Resolved]
  - Hot flush [Not Recovered/Not Resolved]
  - Skin odour abnormal [Recovered/Resolved]
